FAERS Safety Report 9960793 (Version 1)
Quarter: 2014Q1

REPORT INFORMATION
  Report Type: Report from Study
  Country: US (occurrence: US)
  Receive Date: 20140305
  Receipt Date: 20140305
  Transmission Date: 20141002
  Serious: No
  Sender: FDA-Public Use
  Company Number: US-ABBVIE-13P-163-1109035-00

PATIENT
  Sex: Female
  Weight: 61.29 kg

DRUGS (5)
  1. HUMIRA [Suspect]
     Indication: RHEUMATOID ARTHRITIS
     Route: 058
     Dates: start: 2008, end: 2010
  2. HUMIRA [Suspect]
     Indication: PSORIATIC ARTHROPATHY
  3. METHOTREXATE [Concomitant]
     Indication: RHEUMATOID ARTHRITIS
  4. FOLIC ACID [Concomitant]
     Indication: VITAMIN SUPPLEMENTATION
  5. AMITRIPTYLINE [Concomitant]
     Indication: HEADACHE

REACTIONS (5)
  - Sinusitis [Recovering/Resolving]
  - Bronchitis [Recovering/Resolving]
  - Urinary tract infection [Recovering/Resolving]
  - Upper respiratory tract infection [Recovering/Resolving]
  - Headache [Recovering/Resolving]
